FAERS Safety Report 8610498-0 (Version None)
Quarter: 2012Q3

REPORT INFORMATION
  Report Type: 
  Country: None (occurrence: None)
  Receive Date: 20120822
  Receipt Date: 20120814
  Transmission Date: 20120928
  Serious: No
  Sender: FDA-Public Use
  Company Number: US-PFIZER INC-2012153245

PATIENT
  Age: 75 Year
  Sex: Female
  Weight: 54.4 kg

DRUGS (10)
  1. PREMARIN [Suspect]
     Indication: HORMONE REPLACEMENT THERAPY
     Dosage: 0.625 MG, EVERY OTHER DAY
     Dates: end: 20120601
  2. VITAMIN D [Concomitant]
     Indication: VITAMIN SUPPLEMENTATION
     Dosage: UNK, 1X/DAY
  3. SINGULAIR [Concomitant]
     Indication: DYSPNOEA
  4. SINGULAIR [Concomitant]
     Indication: HYPERSENSITIVITY
     Dosage: UNK, 1X/DAY
  5. VITAMIN B COMPLEX CAP [Concomitant]
     Indication: VITAMIN SUPPLEMENTATION
     Dosage: UNK, 1X/DAY
  6. ESTRACE [Suspect]
     Indication: HORMONE REPLACEMENT THERAPY
     Dosage: 0.5 MG, DAILY
     Route: 048
     Dates: start: 20120409, end: 20120706
  7. FLOVENT [Concomitant]
     Dosage: UNK
  8. TRAMADOL [Concomitant]
  9. FLONASE [Concomitant]
  10. BIOTIN [Concomitant]
     Indication: VITAMIN SUPPLEMENTATION
     Dosage: UNK, 1X/DAY

REACTIONS (3)
  - FATIGUE [None]
  - DRUG INEFFECTIVE [None]
  - SLUGGISHNESS [None]
